FAERS Safety Report 22532564 (Version 1)
Quarter: 2023Q2

REPORT INFORMATION
  Report Type: Spontaneous
  Country: US (occurrence: US)
  Receive Date: 20230607
  Receipt Date: 20230607
  Transmission Date: 20230721
  Serious: Yes (Other)
  Sender: FDA-Public Use
  Company Number: US-BAUSCHBL-2023BNL004635

PATIENT
  Sex: Male

DRUGS (2)
  1. LOTEMAX [Suspect]
     Active Substance: LOTEPREDNOL ETABONATE
     Indication: Eye swelling
     Route: 061
  2. LOTEMAX [Suspect]
     Active Substance: LOTEPREDNOL ETABONATE
     Indication: Off label use

REACTIONS (5)
  - Hypersensitivity [Unknown]
  - Eye swelling [Unknown]
  - Symptom recurrence [Unknown]
  - Wrong technique in product usage process [Unknown]
  - Off label use [Unknown]
